FAERS Safety Report 9285646 (Version 2)
Quarter: 2013Q3

REPORT INFORMATION
  Report Type: Spontaneous
  Country: US (occurrence: US)
  Receive Date: 20130513
  Receipt Date: 20130712
  Transmission Date: 20140515
  Serious: Yes (Death, Hospitalization)
  Sender: FDA-Public Use
  Company Number: US-JNJFOC-20130501577

PATIENT
  Age: 43 Year
  Sex: Female

DRUGS (4)
  1. INVEGA SUSTENNA [Suspect]
     Indication: PSYCHOTIC DISORDER
     Dosage: ADMINISTERED AS TWO INJECTIONS OF 117 MG
     Route: 030
     Dates: start: 20130423
  2. INVEGA SUSTENNA [Suspect]
     Indication: PARANOIA
     Dosage: ADMINISTERED AS TWO INJECTIONS OF 117 MG
     Route: 030
     Dates: start: 20130423
  3. SEROQUEL [Concomitant]
     Indication: PARANOIA
     Route: 065
  4. SEROQUEL [Concomitant]
     Indication: PSYCHOTIC DISORDER
     Route: 065

REACTIONS (2)
  - Death [Fatal]
  - Convulsion [Unknown]
